FAERS Safety Report 6753763-4 (Version None)
Quarter: 2010Q2

REPORT INFORMATION
  Report Type: 
  Country: None (occurrence: None)
  Receive Date: 20100603
  Receipt Date: 20100524
  Transmission Date: 20101027
  Serious: Yes (Hospitalization)
  Sender: FDA-Public Use
  Company Number: JP-JNJFOC-20091203664

PATIENT
  Sex: Female
  Weight: 47 kg

DRUGS (19)
  1. DOXORUBICIN HCL [Suspect]
     Indication: OVARIAN CANCER RECURRENT
     Dosage: CYCLE 2
     Route: 042
  2. DOXORUBICIN HCL [Suspect]
     Dosage: CYCLE 1
     Route: 042
  3. DOXORUBICIN HCL [Suspect]
     Dosage: CYCLE 2
     Route: 042
  4. DOXORUBICIN HCL [Suspect]
     Dosage: CYCLE 2
     Route: 042
  5. DOXORUBICIN HCL [Suspect]
     Dosage: CYCLE 2
     Route: 042
  6. NEUROVITAN [Concomitant]
     Indication: PROPHYLAXIS
     Route: 048
  7. HEPARIN [Concomitant]
     Indication: PROPHYLAXIS
     Route: 061
  8. RAMELTEON [Concomitant]
     Indication: PROPHYLAXIS
     Route: 048
  9. HACHIAZULE [Concomitant]
     Indication: PROPHYLAXIS
     Route: 049
  10. CRAVIT [Concomitant]
     Indication: PYREXIA
     Route: 048
  11. KENALOG [Concomitant]
     Indication: PROPHYLAXIS
     Route: 049
  12. KENALOG [Concomitant]
     Indication: STOMATITIS
     Route: 049
  13. GASTER D [Concomitant]
     Route: 048
  14. LOBU [Concomitant]
     Route: 048
  15. SELBEX [Concomitant]
     Indication: GASTRITIS
     Route: 048
  16. AFTACH [Concomitant]
     Indication: PROPHYLAXIS
     Route: 049
  17. AFTACH [Concomitant]
     Indication: STOMATITIS
     Route: 049
  18. POVIDONE IODINE [Concomitant]
     Indication: PROPHYLAXIS
     Route: 049
  19. POVIDONE IODINE [Concomitant]
     Indication: STOMATITIS
     Route: 049

REACTIONS (3)
  - INTERSTITIAL LUNG DISEASE [None]
  - NEUTROPENIA [None]
  - WHITE BLOOD CELL COUNT DECREASED [None]
